FAERS Safety Report 6220405-6 (Version None)
Quarter: 2009Q2

REPORT INFORMATION
  Report Type: 
  Country: None (occurrence: None)
  Receive Date: 20090610
  Receipt Date: 20090602
  Transmission Date: 20091009
  Serious: Yes (Hospitalization)
  Sender: FDA-Public Use
  Company Number: CA-ASTRAZENECA-2009UW10345

PATIENT
  Age: 60 Year
  Sex: Female

DRUGS (9)
  1. CRESTOR [Suspect]
     Route: 048
     Dates: start: 20090325
  2. CLONIDINE [Concomitant]
     Indication: HYPERTENSION
     Dosage: 1 DAILY
     Route: 048
     Dates: start: 20070325
  3. METFORMIN [Concomitant]
     Indication: DIABETES MELLITUS
     Dosage: 500 DAILY
     Route: 048
     Dates: start: 20031001
  4. METHYLDOPA [Concomitant]
     Indication: HYPERTENSION
     Dosage: 250 TID
     Route: 048
     Dates: start: 20001001
  5. IMDUR [Concomitant]
     Dosage: 60 DAILY
     Dates: start: 20001001
  6. MICARDIS [Concomitant]
     Dates: start: 20080401
  7. BISOPROLOL [Concomitant]
     Dates: start: 20060501
  8. RIVASA [Concomitant]
     Dosage: 80 DAILY
     Dates: start: 20000101
  9. LIPITOR [Concomitant]
     Dosage: 80

REACTIONS (2)
  - BLOOD VISCOSITY INCREASED [None]
  - CELLULITIS [None]
